FAERS Safety Report 7647492-2 (Version None)
Quarter: 2011Q3

REPORT INFORMATION
  Report Type: 
  Country: None (occurrence: None)
  Receive Date: 20110801
  Receipt Date: 20110712
  Transmission Date: 20111222
  Serious: Yes (Hospitalization)
  Sender: FDA-Public Use
  Company Number: US-GLAXOSMITHKLINE-A0870174A

PATIENT
  Age: 51 Year
  Sex: Male

DRUGS (12)
  1. NEURONTIN [Concomitant]
  2. NORVASC [Concomitant]
  3. ALBUTEROL SULFATE AUTOHALER [Concomitant]
  4. LOPID [Concomitant]
  5. FLEXERIL [Concomitant]
  6. METFORMIN HCL [Concomitant]
  7. AVANDIA [Suspect]
     Indication: DIABETES MELLITUS
     Dosage: 4MG TWICE PER DAY
     Route: 048
     Dates: start: 20010101, end: 20080101
  8. AMBIEN [Concomitant]
  9. ZOCOR [Concomitant]
  10. PAXIL [Concomitant]
  11. GLUCOTROL [Concomitant]
  12. DIOVAN [Concomitant]

REACTIONS (2)
  - CARDIAC FAILURE CONGESTIVE [None]
  - MYOCARDIAL INFARCTION [None]
